FAERS Safety Report 20612258 (Version 1)
Quarter: 2022Q1

REPORT INFORMATION
  Report Type: Spontaneous
  Country: US (occurrence: None)
  Receive Date: 20220318
  Receipt Date: 20220318
  Transmission Date: 20220423
  Serious: No
  Sender: FDA-Public Use
  Company Number: None

PATIENT
  Age: 72 Year
  Sex: Male

DRUGS (1)
  1. ENBREL [Suspect]
     Active Substance: ETANERCEPT
     Indication: Rheumatoid arthritis
     Dosage: 50MG OTHER SUBCUTANEOUS
     Route: 058
     Dates: start: 200203

REACTIONS (2)
  - Pancreatic carcinoma [None]
  - Therapy interrupted [None]

NARRATIVE: CASE EVENT DATE: 20211101
